FAERS Safety Report 8611992 (Version 2)
Quarter: 2013Q2

REPORT INFORMATION
  Report Type: Report from Study
  Country: CA (occurrence: CA)
  Receive Date: 20120613
  Receipt Date: 20130429
  Transmission Date: 20140414
  Serious: Yes (Other)
  Sender: FDA-Public Use
  Company Number: PHHY2011CA51619

PATIENT
  Sex: Female

DRUGS (1)
  1. ACLASTA [Suspect]
     Indication: OSTEOPOROSIS
     Route: 042
     Dates: start: 20100531

REACTIONS (5)
  - Urinary tract infection [Unknown]
  - Vaginal infection [Unknown]
  - Bone loss [Unknown]
  - Tooth disorder [Unknown]
  - Back pain [Unknown]
